FAERS Safety Report 14186645 (Version 3)
Quarter: 2018Q4

REPORT INFORMATION
  Report Type: Spontaneous
  Country: IT (occurrence: IT)
  Receive Date: 20171114
  Receipt Date: 20181003
  Transmission Date: 20190204
  Serious: No
  Sender: FDA-Public Use
  Company Number: IT-SUN PHARMACEUTICAL INDUSTRIES LTD-2017RR-152731

PATIENT
  Age: 43 Year
  Sex: Male

DRUGS (6)
  1. RISPERDAL [Suspect]
     Active Substance: RISPERIDONE
     Indication: PRODUCT USED FOR UNKNOWN INDICATION
     Dosage: 1 MG TOTAL
     Route: 048
     Dates: start: 20170920, end: 20170920
  2. GABAPENTIN. [Suspect]
     Active Substance: GABAPENTIN
     Indication: PRODUCT USED FOR UNKNOWN INDICATION
     Dosage: 100 MG TOTAL
     Route: 048
     Dates: start: 20170920, end: 20170920
  3. LIBRIUM [Suspect]
     Active Substance: CHLORDIAZEPOXIDE HYDROCHLORIDE
     Dosage: 20 MG TOTAL
     Route: 048
     Dates: start: 20170920, end: 20170920
  4. ALCOVER [Suspect]
     Active Substance: SODIUM OXYBATE
     Indication: PRODUCT USED FOR UNKNOWN INDICATION
     Dosage: 3 DF TOTAL
     Route: 048
     Dates: start: 20170920, end: 20170920
  5. DIAZEPAM ALTER  5 MG/ML [Suspect]
     Active Substance: DIAZEPAM
     Indication: PRODUCT USED FOR UNKNOWN INDICATION
     Dosage: 30 MG TOTAL
     Route: 048
     Dates: start: 20170920, end: 20170920
  6. ETHANOL (WINE) [Suspect]
     Active Substance: WINE
     Indication: PRODUCT USED FOR UNKNOWN INDICATION
     Dosage: 1.5 L2
     Route: 065
     Dates: start: 20170920, end: 20170920

REACTIONS (3)
  - Alcohol abuse [Unknown]
  - Asthenia [Unknown]
  - Drug abuse [Unknown]

NARRATIVE: CASE EVENT DATE: 20170920
